FAERS Safety Report 12075180 (Version 2)
Quarter: 2016Q2

REPORT INFORMATION
  Report Type: Spontaneous
  Country: JP (occurrence: JP)
  Receive Date: 20160212
  Receipt Date: 20160401
  Transmission Date: 20160815
  Serious: Yes (Hospitalization)
  Sender: FDA-Public Use
  Company Number: JP-UNITED THERAPEUTICS-UNT-2015-001746

PATIENT
  Age: 50 Year
  Sex: Female

DRUGS (2)
  1. REMODULIN [Suspect]
     Active Substance: TREPROSTINIL
     Dosage: 26 MCL/H
     Route: 058
     Dates: start: 20150224
  2. REMODULIN [Suspect]
     Active Substance: TREPROSTINIL
     Indication: PULMONARY ARTERIAL HYPERTENSION
     Dosage: UNK
     Route: 058
     Dates: start: 20150205

REACTIONS (9)
  - Infusion site pruritus [Unknown]
  - Infusion site erythema [Unknown]
  - Cardiac failure [Not Recovered/Not Resolved]
  - Infusion site pain [Unknown]
  - Infusion site induration [Unknown]
  - Infusion site warmth [Unknown]
  - Headache [Unknown]
  - Nausea [Unknown]
  - Scintillating scotoma [Unknown]

NARRATIVE: CASE EVENT DATE: 20150207
